FAERS Safety Report 5817603-X (Version None)
Quarter: 2008Q3

REPORT INFORMATION
  Report Type: 
  Country: None (occurrence: None)
  Receive Date: 20080722
  Receipt Date: 20080715
  Transmission Date: 20090109
  Serious: Yes (Other)
  Sender: FDA-Public Use
  Company Number: US-AVENTIS-200813174US

PATIENT
  Sex: Female
  Weight: 87.27 kg

DRUGS (7)
  1. LOVENOX [Suspect]
     Route: 058
     Dates: start: 20080414, end: 20080416
  2. METOPROLOL TARTRATE [Concomitant]
  3. AMILORIDE HYDROCHLORIDE [Concomitant]
  4. SERTRALINE [Concomitant]
  5. COUMADIN [Concomitant]
     Indication: ATRIAL FIBRILLATION
  6. POTASSIUM CHLORIDE [Concomitant]
  7. MAGOXIDE [Concomitant]

REACTIONS (4)
  - HAEMATOMA [None]
  - HAEMORRHAGE [None]
  - HYPOTENSION [None]
  - RENAL FAILURE ACUTE [None]
